FAERS Safety Report 12181447 (Version 9)
Quarter: 2021Q4

REPORT INFORMATION
  Report Type: Report from Study
  Country: CA (occurrence: CA)
  Receive Date: 20160315
  Receipt Date: 20211006
  Transmission Date: 20220303
  Serious: Yes (Other)
  Sender: FDA-Public Use
  Company Number: PHHY2016CA032936

PATIENT
  Age: 64 Year
  Sex: Female

DRUGS (12)
  1. SANDOSTATIN LAR DEPOT [Suspect]
     Active Substance: OCTREOTIDE ACETATE
     Indication: Acromegaly
     Dosage: 20 MG, QMO
     Route: 030
     Dates: start: 20151021, end: 20170703
  2. SANDOSTATIN LAR DEPOT [Suspect]
     Active Substance: OCTREOTIDE ACETATE
     Dosage: 30 MG, Q4W
     Route: 030
     Dates: start: 20151021
  3. SANDOSTATIN LAR DEPOT [Suspect]
     Active Substance: OCTREOTIDE ACETATE
     Dosage: 30 MG, Q4W (EVERY 4 WEEKS)
     Route: 030
     Dates: start: 20170801
  4. VITAMIN D [Suspect]
     Active Substance: VITAMIN D NOS
     Indication: Product used for unknown indication
     Dosage: 1000 IU, QD
     Route: 048
  5. VITAMIN D [Suspect]
     Active Substance: VITAMIN D NOS
     Dosage: 10000 IU
     Route: 065
  6. KOMBIGLYZE XR [Concomitant]
     Active Substance: METFORMIN HYDROCHLORIDE\SAXAGLIPTIN HYDROCHLORIDE
     Indication: Product used for unknown indication
     Dosage: 1 DF, BID
     Route: 048
  7. CRESTOR [Concomitant]
     Active Substance: ROSUVASTATIN CALCIUM
     Indication: Product used for unknown indication
     Dosage: 10 MG, QD
     Route: 048
  8. PERINDOPRIL ERBUMINE [Concomitant]
     Active Substance: PERINDOPRIL ERBUMINE
     Indication: Blood pressure abnormal
     Dosage: UNK
     Route: 065
  9. METFORMIN [Concomitant]
     Active Substance: METFORMIN HYDROCHLORIDE
     Indication: Diabetes mellitus
     Dosage: UNK
     Route: 065
  10. ATORVASTATIN [Concomitant]
     Active Substance: ATORVASTATIN
     Indication: Blood cholesterol abnormal
     Dosage: UNK
     Route: 065
  11. VITAMIN D3 [Concomitant]
     Active Substance: CHOLECALCIFEROL
     Indication: Product used for unknown indication
     Dosage: UNK
     Route: 065
  12. MAGNESIUM [Concomitant]
     Active Substance: MAGNESIUM
     Indication: Product used for unknown indication
     Dosage: UNK
     Route: 065

REACTIONS (25)
  - Pneumonia [Unknown]
  - Illness [Unknown]
  - Haematochezia [Unknown]
  - Blood pressure systolic increased [Unknown]
  - Cystitis [Not Recovered/Not Resolved]
  - Groin pain [Unknown]
  - Chromaturia [Unknown]
  - Urine odour abnormal [Unknown]
  - Erythema [Not Recovered/Not Resolved]
  - Genital swelling [Unknown]
  - Haemorrhoids [Unknown]
  - Ear pain [Unknown]
  - Peripheral swelling [Unknown]
  - Urinary tract infection [Not Recovered/Not Resolved]
  - Pruritus [Unknown]
  - Abdominal pain lower [Recovered/Resolved]
  - Diarrhoea [Unknown]
  - Abdominal pain [Unknown]
  - Decreased appetite [Unknown]
  - Vomiting [Unknown]
  - Nausea [Unknown]
  - Injection site pain [Recovered/Resolved]
  - Genital tract inflammation [Recovered/Resolved with Sequelae]
  - Hernia [Recovered/Resolved with Sequelae]
  - Abdominal pain lower [Recovered/Resolved with Sequelae]

NARRATIVE: CASE EVENT DATE: 20160606
